FAERS Safety Report 16798431 (Version 1)
Quarter: 2019Q3

REPORT INFORMATION
  Report Type: Spontaneous
  Country: US (occurrence: US)
  Receive Date: 20190722
  Receipt Date: 20190722
  Transmission Date: 20191005
  Serious: No
  Sender: FDA-Public Use
  Company Number: None

PATIENT
  Sex: Male

DRUGS (1)
  1. HCG 2.0 WEIGHT LOSS PATCH [DIETARY SUPPLEMENT\HOMEOPATHICS] [Suspect]
     Active Substance: DIETARY SUPPLEMENT\HOMEOPATHICS
     Indication: WEIGHT CONTROL

REACTIONS (5)
  - Hypophagia [None]
  - Muscle atrophy [None]
  - Decreased appetite [None]
  - Hunger [None]
  - Headache [None]
